FAERS Safety Report 25228636 (Version 1)
Quarter: 2025Q2

REPORT INFORMATION
  Report Type: Spontaneous
  Country: GB (occurrence: GB)
  Receive Date: 20250423
  Receipt Date: 20250423
  Transmission Date: 20250717
  Serious: Yes (Disabling, Other)
  Sender: TEVA
  Company Number: None

PATIENT
  Age: 70 Year
  Sex: Female
  Weight: 49 kg

DRUGS (2)
  1. ALENDRONIC ACID [Suspect]
     Active Substance: ALENDRONIC ACID
     Indication: Osteoporotic fracture
     Dosage: ALENDRONIC ACID AND VITAMIN D SUBSTANCES
     Route: 065
     Dates: start: 20240401
  2. CALCIUM CARBONATE\CHOLECALCIFEROL [Concomitant]
     Active Substance: CALCIUM CARBONATE\CHOLECALCIFEROL
     Indication: Osteoporosis
     Dates: start: 20240401

REACTIONS (4)
  - Photosensitivity reaction [Not Recovered/Not Resolved]
  - Rash erythematous [Unknown]
  - Dyspnoea [Unknown]
  - Rash pruritic [Unknown]

NARRATIVE: CASE EVENT DATE: 20240401
